FAERS Safety Report 19714181 (Version 1)
Quarter: 2021Q3

REPORT INFORMATION
  Report Type: Spontaneous
  Country: US (occurrence: US)
  Receive Date: 20210817
  Receipt Date: 20210817
  Transmission Date: 20211014
  Serious: Yes (Other)
  Sender: FDA-Public Use
  Company Number: None

PATIENT
  Age: 73 Year
  Sex: Female
  Weight: 76.2 kg

DRUGS (7)
  1. TUMENIC [Concomitant]
  2. FLAXSEED [Concomitant]
     Active Substance: FLAX SEED
  3. LISINOPRIL TAB [Suspect]
     Active Substance: LISINOPRIL
     Indication: HYPERTENSION
     Dosage: ?          QUANTITY:1 DF DOSAGE FORM;?
     Route: 048
     Dates: start: 20210709, end: 20210726
  4. BLK COHOST [Concomitant]
  5. MULTI VIT [Concomitant]
     Active Substance: VITAMINS
  6. SCHIFF MOVE FREE [Concomitant]
     Active Substance: DIETARY SUPPLEMENT
  7. GARLIC. [Concomitant]
     Active Substance: GARLIC

REACTIONS (1)
  - Cough [None]

NARRATIVE: CASE EVENT DATE: 20210723
